FAERS Safety Report 4752185-5 (Version None)
Quarter: 2005Q3

REPORT INFORMATION
  Report Type: 
  Country: None (occurrence: None)
  Receive Date: 20050824
  Receipt Date: 20050824
  Transmission Date: 20060218
  Serious: Yes (Death, Hospitalization)
  Sender: FDA-Public Use
  Company Number: None

PATIENT
  Sex: Female
  Weight: 59.6 kg

DRUGS (7)
  1. BUSULFAN [Suspect]
     Indication: ACUTE MYELOID LEUKAEMIA
     Dates: start: 20050308, end: 20050311
  2. CYCLOPHOSPHAMIDE [Suspect]
     Dosage: SEE IMAGE
     Dates: start: 20050312, end: 20050315
  3. CYCLOSPORINE [Suspect]
     Dosage: SEE IMAGE
  4. CYTARABINE [Suspect]
     Dosage: SEE IMAGE
     Dates: start: 20041018, end: 20041231
  5. DAUNORUBICIN HCL [Suspect]
     Dosage: SEE IMAGE
     Dates: start: 20041018, end: 20041128
  6. ETOPOSIDE [Suspect]
     Dosage: SEE IMAGE
     Dates: start: 20041018, end: 20041231
  7. METHOTREXATE [Suspect]
     Dosage: SEE IMAGE
     Dates: start: 20050318, end: 20050323

REACTIONS (25)
  - ACIDOSIS [None]
  - ACUTE RESPIRATORY DISTRESS SYNDROME [None]
  - ACUTE RESPIRATORY FAILURE [None]
  - BRADYCARDIA [None]
  - CARDIAC ARREST [None]
  - CELLULITIS [None]
  - DIFFICULTY IN WALKING [None]
  - EFFUSION [None]
  - EJECTION FRACTION DECREASED [None]
  - GAIT DISTURBANCE [None]
  - HAEMODYNAMIC INSTABILITY [None]
  - HEPATIC FAILURE [None]
  - HYPOTENSION [None]
  - INFECTION [None]
  - JOINT EFFUSION [None]
  - LEGIONELLA INFECTION [None]
  - NEUTROPHIL COUNT DECREASED [None]
  - OTITIS MEDIA [None]
  - PLATELET COUNT DECREASED [None]
  - PNEUMONIA [None]
  - PUPIL FIXED [None]
  - PYREXIA [None]
  - RENAL FAILURE [None]
  - SUPRAVENTRICULAR TACHYCARDIA [None]
  - VENTRICULAR HYPERTROPHY [None]
